FAERS Safety Report 16838356 (Version 1)
Quarter: 2019Q3

REPORT INFORMATION
  Report Type: Spontaneous
  Country: US (occurrence: US)
  Receive Date: 20190923
  Receipt Date: 20190923
  Transmission Date: 20191005
  Serious: Yes (Hospitalization, Other)
  Sender: FDA-Public Use
  Company Number: US-AUROBINDO-AUR-APL-2019-061784

PATIENT
  Age: 17 Year
  Sex: Female

DRUGS (1)
  1. IBUPROFEN. [Suspect]
     Active Substance: IBUPROFEN
     Indication: PRODUCT USED FOR UNKNOWN INDICATION
     Dosage: 1466 MILLIGRAM/KILOGRAM (100 GRAMS)
     Route: 065

REACTIONS (7)
  - Toxicity to various agents [Unknown]
  - Overdose [Unknown]
  - Lactic acidosis [Unknown]
  - Cardiac dysfunction [Unknown]
  - Metabolic acidosis [Unknown]
  - Hypotension [Unknown]
  - Cardiac failure [Unknown]
